FAERS Safety Report 19813079 (Version 1)
Quarter: 2021Q3

REPORT INFORMATION
  Report Type: Spontaneous
  Country: US (occurrence: US)
  Receive Date: 20210909
  Receipt Date: 20210909
  Transmission Date: 20211014
  Serious: No
  Sender: FDA-Public Use
  Company Number: US-PERRIGO-21US002761

PATIENT
  Age: 52 Year
  Sex: Female
  Weight: 50.34 kg

DRUGS (5)
  1. MINOXIDIL. [Suspect]
     Active Substance: MINOXIDIL
     Dosage: 1 ML IN THE MORNING
     Route: 061
     Dates: start: 20210223
  2. MINOXIDIL. [Suspect]
     Active Substance: MINOXIDIL
     Indication: ANDROGENETIC ALOPECIA
     Dosage: MORE THAN 1 ML, SINGLE
     Route: 061
     Dates: start: 20210220, end: 20210220
  3. MINOXIDIL. [Suspect]
     Active Substance: MINOXIDIL
     Dosage: MORE THAN 1 ML, BID
     Route: 061
     Dates: start: 20210221, end: 20210221
  4. MINOXIDIL. [Suspect]
     Active Substance: MINOXIDIL
     Dosage: MORE THAN 1 ML IN THE MORNING, 1 ML IN THE EVENING
     Route: 061
     Dates: start: 20210222, end: 20210222
  5. SPIRONOLACTONE. [Concomitant]
     Active Substance: SPIRONOLACTONE
     Indication: HORMONE REPLACEMENT THERAPY
     Dosage: UNK
     Route: 065
     Dates: start: 202010

REACTIONS (3)
  - Product administered at inappropriate site [Recovered/Resolved]
  - Inappropriate schedule of product administration [Unknown]
  - Incorrect dose administered [Recovered/Resolved]

NARRATIVE: CASE EVENT DATE: 20210220
